FAERS Safety Report 8378062-9 (Version None)
Quarter: 2012Q2

REPORT INFORMATION
  Report Type: 
  Country: None (occurrence: None)
  Receive Date: 20120522
  Receipt Date: 20120511
  Transmission Date: 20120825
  Serious: Yes (Hospitalization)
  Sender: FDA-Public Use
  Company Number: US-ROCHE-1068313

PATIENT
  Sex: Male

DRUGS (4)
  1. CARBOPLATIN [Suspect]
     Indication: NON-HODGKIN'S LYMPHOMA
     Dosage: LAST DOSE PRIOR TO SAE: 11/MAR/2012
     Dates: start: 20111215
  2. MABTHERA [Suspect]
     Indication: NON-HODGKIN'S LYMPHOMA
     Dosage: LAST DOSE PRIOR TO SAE: 11/MAR/2012
     Dates: start: 20111215
  3. ETOPOSIDE [Suspect]
     Indication: NON-HODGKIN'S LYMPHOMA
     Dosage: LAST DOSE PRIOR TO SAE: 11/MAR/2012
     Dates: start: 20111215
  4. IFOSFAMIDE [Suspect]
     Indication: NON-HODGKIN'S LYMPHOMA
     Dosage: LAST DOSE PRIOR TO SAE: 11/MAR/2012
     Dates: start: 20111215

REACTIONS (5)
  - FEBRILE NEUTROPENIA [None]
  - PROCTALGIA [None]
  - DIARRHOEA [None]
  - HYPOTENSION [None]
  - INFECTION [None]
